FAERS Safety Report 23846703 (Version 1)
Quarter: 2024Q2

REPORT INFORMATION
  Report Type: Spontaneous
  Country: US (occurrence: US)
  Receive Date: 20240513
  Receipt Date: 20240513
  Transmission Date: 20240716
  Serious: Yes (Other)
  Sender: FDA-Public Use
  Company Number: US-BRISTOL-MYERS SQUIBB COMPANY-2024-073271

PATIENT
  Age: 87 Year
  Sex: Female
  Weight: 45.81 kg

DRUGS (9)
  1. REVLIMID [Suspect]
     Active Substance: LENALIDOMIDE
     Indication: Plasma cell myeloma
     Route: 048
     Dates: start: 20230808, end: 20240503
  2. POMALYST [Concomitant]
     Active Substance: POMALIDOMIDE
  3. ASPIRIN [Concomitant]
     Active Substance: ASPIRIN
     Dates: start: 20230808
  4. CARBOXYMETHYLCELLULOSE SODIUM [Concomitant]
     Active Substance: CARBOXYMETHYLCELLULOSE SODIUM
     Dates: start: 20240327
  5. VITAMIN D3 [Concomitant]
     Active Substance: CHOLECALCIFEROL
     Dosage: 2000 U
     Dates: start: 20240327
  6. PREMARIN [Concomitant]
     Active Substance: ESTROGENS, CONJUGATED
     Dosage: 0.625MG/GM CREA
     Dates: start: 20240327
  7. FAMOTIDINE [Concomitant]
     Active Substance: FAMOTIDINE
     Dates: start: 20230808
  8. OMEPRAZOLE [Concomitant]
     Active Substance: DONEPEZIL HYDROCHLORIDE\OMEPRAZOLE\OMEPRAZOLE MAGNESIUM
     Dosage: CPDR
     Dates: start: 20230808
  9. VELCADE [Concomitant]
     Active Substance: BORTEZOMIB
     Dosage: 3.5 VI
     Dates: start: 20230808

REACTIONS (1)
  - Plasma cell myeloma [Unknown]
